FAERS Safety Report 15138400 (Version 1)
Quarter: 2018Q3

REPORT INFORMATION
  Report Type: Spontaneous
  Country: US (occurrence: US)
  Receive Date: 20180713
  Receipt Date: 20180713
  Transmission Date: 20181010
  Serious: Yes (Other)
  Sender: FDA-Public Use
  Company Number: US-STRIDES ARCOLAB LIMITED-2018SP005842

PATIENT

DRUGS (16)
  1. TINIDAZOLE. [Suspect]
     Active Substance: TINIDAZOLE
     Dosage: UNK (VAGINAL PASTE)
     Route: 061
  2. BORIC ACID [Suspect]
     Active Substance: BORIC ACID
     Dosage: 600 MG, DAILY
     Route: 067
  3. PAROMOMYCIN [Concomitant]
     Active Substance: PAROMOMYCIN
     Indication: TRICHOMONIASIS
     Dosage: UNK
     Route: 067
  4. METRONIDAZOLE. [Suspect]
     Active Substance: METRONIDAZOLE
     Dosage: 2 G, QD
     Route: 048
  5. METRONIDAZOLE. [Suspect]
     Active Substance: METRONIDAZOLE
     Dosage: 500 MG, EVERY 8 HRS
     Route: 042
  6. METRONIDAZOLE. [Suspect]
     Active Substance: METRONIDAZOLE
     Dosage: UNK
     Route: 042
  7. ZINC SULFATE [Suspect]
     Active Substance: ZINC SULFATE\ZINC SULFATE ANHYDROUS
     Indication: TRICHOMONIASIS
     Dosage: UNK
     Route: 067
  8. PROMETHAZINE [Concomitant]
     Active Substance: PROMETHAZINE\PROMETHAZINE HYDROCHLORIDE
     Indication: NAUSEA
     Dosage: UNK, PRN
     Route: 065
  9. METRONIDAZOLE. [Suspect]
     Active Substance: METRONIDAZOLE
     Dosage: 0.75 %, QD
     Route: 067
  10. BORIC ACID [Suspect]
     Active Substance: BORIC ACID
     Dosage: 600 MG, DAILY
     Route: 067
  11. TINIDAZOLE. [Suspect]
     Active Substance: TINIDAZOLE
     Indication: TRICHOMONIASIS
     Dosage: 2 G, UNK
     Route: 048
  12. TINIDAZOLE. [Suspect]
     Active Substance: TINIDAZOLE
     Dosage: 2 G, LIQUID
     Route: 048
  13. BORIC ACID [Suspect]
     Active Substance: BORIC ACID
     Indication: TRICHOMONIASIS
     Dosage: 600 MG, DAILY
     Route: 067
  14. METRONIDAZOLE. [Suspect]
     Active Substance: METRONIDAZOLE
     Indication: TRICHOMONIASIS
     Dosage: 2 G, SINGLE DOSE
     Route: 048
  15. METRONIDAZOLE. [Suspect]
     Active Substance: METRONIDAZOLE
     Dosage: 2 G, UNK
     Route: 048
  16. TINIDAZOLE. [Suspect]
     Active Substance: TINIDAZOLE
     Dosage: 2 G, QD
     Route: 048

REACTIONS (1)
  - Drug ineffective [Unknown]
